FAERS Safety Report 5308742-0 (Version None)
Quarter: 2007Q2

REPORT INFORMATION
  Report Type: 
  Country: None (occurrence: None)
  Receive Date: 20070426
  Receipt Date: 20070416
  Transmission Date: 20071010
  Serious: Yes (Hospitalization)
  Sender: FDA-Public Use
  Company Number: FR-BAXTER-2007BH002958

PATIENT
  Age: 55 Year
  Sex: Female

DRUGS (3)
  1. BREVIBLOC [Suspect]
     Indication: ECHOCARDIOGRAM
     Dosage: DOSE UNIT:UNKNOWN
     Route: 042
  2. DOBUTAMINE [Suspect]
     Indication: ECHOCARDIOGRAM
     Route: 042
  3. ATROPINE [Suspect]
     Indication: ECHOCARDIOGRAM
     Route: 042

REACTIONS (2)
  - LIP OEDEMA [None]
  - OEDEMA MOUTH [None]
